FAERS Safety Report 9469106 (Version 2)
Quarter: 2013Q4

REPORT INFORMATION
  Report Type: Spontaneous
  Country: BR (occurrence: BR)
  Receive Date: 20130821
  Receipt Date: 20131111
  Transmission Date: 20140711
  Serious: Yes (Other)
  Sender: FDA-Public Use
  Company Number: BR-PFIZER INC-2013237555

PATIENT
  Age: 76 Year
  Sex: Female
  Weight: 62 kg

DRUGS (2)
  1. XALATAN [Suspect]
     Indication: GLAUCOMA
     Dosage: ONE DROP EACH EYE, ONCE A DAY
     Route: 047
     Dates: start: 1998, end: 2004
  2. XALATAN [Suspect]
     Dosage: UNK
     Dates: start: 2013

REACTIONS (2)
  - Glaucoma [Unknown]
  - Cataract [Unknown]
